FAERS Safety Report 6168209-7 (Version None)
Quarter: 2009Q2

REPORT INFORMATION
  Report Type: 
  Country: None (occurrence: None)
  Receive Date: 20090423
  Receipt Date: 20090423
  Transmission Date: 20091009
  Serious: Yes (Death)
  Sender: FDA-Public Use
  Company Number: None

PATIENT
  Age: 58 Year
  Sex: Male
  Weight: 60.3284 kg

DRUGS (1)
  1. SORAFENIB 200MG TAB [Suspect]
     Indication: NEOPLASM
     Dosage: 200MG DAILY PO
     Route: 048
     Dates: start: 20090218, end: 20090318

REACTIONS (3)
  - DISEASE PROGRESSION [None]
  - LARYNGEAL CANCER [None]
  - METASTATIC NEOPLASM [None]
